FAERS Safety Report 25839981 (Version 1)
Quarter: 2025Q3

REPORT INFORMATION
  Report Type: Spontaneous
  Country: JP (occurrence: JP)
  Receive Date: 20250924
  Receipt Date: 20250924
  Transmission Date: 20251021
  Serious: Yes (Other)
  Sender: GLAXOSMITHKLINE
  Company Number: JP-GSK-JP2025JPN119859

PATIENT
  Sex: Female

DRUGS (2)
  1. ZEFIX [Suspect]
     Active Substance: LAMIVUDINE
  2. STRONGER NEO-MINOPHAGEN C [Concomitant]
     Active Substance: AMMONIUM GLYCYRRHIZATE\CYSTEINE HYDROCHLORIDE\GLYCINE

REACTIONS (1)
  - Arrhythmia [Unknown]
